FAERS Safety Report 18121791 (Version 3)
Quarter: 2020Q4

REPORT INFORMATION
  Report Type: Spontaneous
  Country: US (occurrence: US)
  Receive Date: 20200806
  Receipt Date: 20201003
  Transmission Date: 20210113
  Serious: Yes (Other)
  Sender: FDA-Public Use
  Company Number: US-LEXICON PHARMACEUTICALS, INC-20-1606-00610

PATIENT
  Age: 80 Year
  Sex: Female

DRUGS (3)
  1. XERMELO [Suspect]
     Active Substance: TELOTRISTAT ETHYL
  2. XERMELO [Suspect]
     Active Substance: TELOTRISTAT ETHYL
     Indication: NEUROENDOCRINE TUMOUR
     Dates: start: 20200707
  3. OCTREOTIDE. [Concomitant]
     Active Substance: OCTREOTIDE

REACTIONS (5)
  - Headache [Unknown]
  - Off label use [Unknown]
  - Cataract operation [Unknown]
  - Ageusia [Unknown]
  - Musculoskeletal discomfort [Unknown]
